FAERS Safety Report 7481315-X (Version None)
Quarter: 2011Q2

REPORT INFORMATION
  Report Type: 
  Country: None (occurrence: None)
  Receive Date: 20110512
  Receipt Date: 20110512
  Transmission Date: 20111010
  Serious: Yes (Life-Threatening)
  Sender: FDA-Public Use
  Company Number: None

PATIENT
  Age: 34 Year
  Sex: Male
  Weight: 48.9 kg

DRUGS (6)
  1. SERTRALINE HYDROCHLORIDE [Concomitant]
  2. CHLORHEXIDINE GLUCONATE [Suspect]
     Indication: INFECTION PROPHYLAXIS
     Dosage: TOPICAL
     Route: 061
     Dates: start: 20100325
  3. ITRACONAZOLE [Concomitant]
  4. BACTRIM DS [Concomitant]
  5. LISINOPRIL [Concomitant]
  6. ADVAIR DISKUS 100/50 [Concomitant]

REACTIONS (3)
  - URTICARIA [None]
  - HYPOTENSION [None]
  - TACHYCARDIA [None]
